FAERS Safety Report 17313817 (Version 1)
Quarter: 2020Q1

REPORT INFORMATION
  Report Type: Other
  Country: GB (occurrence: CZ)
  Receive Date: 20200124
  Receipt Date: 20200124
  Transmission Date: 20200409
  Serious: Yes (Other)
  Sender: FDA-Public Use
  Company Number: CZ-ASTELLAS-2020US002785

PATIENT
  Age: 72 Year
  Sex: Female

DRUGS (2)
  1. PEMETREXED. [Suspect]
     Active Substance: PEMETREXED
     Indication: LUNG ADENOCARCINOMA
     Dosage: UNK UNK, UNKNOWN FREQ.(CYCLIC, 4 CYCLES, 2ND LINE OF TREATMENT)
     Route: 065
     Dates: start: 201804, end: 201806
  2. ERLOTINIB [Suspect]
     Active Substance: ERLOTINIB
     Indication: LUNG ADENOCARCINOMA
     Dosage: UNK, UNKNOWN FREQ. (CYCLIC, 3RD LINE OF TREATMENT)
     Route: 065
     Dates: start: 201806, end: 201811

REACTIONS (3)
  - Malignant pleural effusion [Unknown]
  - Lung adenocarcinoma [Recovering/Resolving]
  - Malignant neoplasm progression [Unknown]
